FAERS Safety Report 15206449 (Version 1)
Quarter: 2018Q3

REPORT INFORMATION
  Report Type: Spontaneous
  Country: US (occurrence: US)
  Receive Date: 20180727
  Receipt Date: 20180727
  Transmission Date: 20181010
  Serious: Yes (Hospitalization, Other)
  Sender: FDA-Public Use
  Company Number: US-ZYDUS-020918

PATIENT
  Age: 21 Year
  Sex: Female

DRUGS (1)
  1. LINEZOLID. [Suspect]
     Active Substance: LINEZOLID
     Indication: PRODUCT USED FOR UNKNOWN INDICATION
     Route: 065

REACTIONS (12)
  - Langerhans^ cell histiocytosis [Unknown]
  - Lymphadenopathy [Unknown]
  - Pneumothorax [Recovered/Resolved]
  - Drug reaction with eosinophilia and systemic symptoms [Unknown]
  - Pleural effusion [Recovered/Resolved]
  - Pyrexia [Unknown]
  - Thrombocytopenia [Unknown]
  - Acute respiratory failure [Recovering/Resolving]
  - Rash erythematous [Recovering/Resolving]
  - Seizure [Unknown]
  - Lung infiltration [Recovering/Resolving]
  - Eosinophilia [Unknown]
